FAERS Safety Report 15997285 (Version 1)
Quarter: 2019Q1

REPORT INFORMATION
  Report Type: Spontaneous
  Country: US (occurrence: US)
  Receive Date: 20190222
  Receipt Date: 20190222
  Transmission Date: 20190418
  Serious: No
  Sender: FDA-Public Use
  Company Number: US-SA-2019SA043482

PATIENT
  Age: 79 Year
  Sex: Male

DRUGS (1)
  1. DUPIXENT [Suspect]
     Active Substance: DUPILUMAB
     Dosage: UNK UNK
     Route: 058
     Dates: start: 20190205

REACTIONS (5)
  - Dermatitis [Unknown]
  - Pruritus [Unknown]
  - Rash [Unknown]
  - Eye pruritus [Unknown]
  - Eye swelling [Unknown]
